FAERS Safety Report 14552589 (Version 2)
Quarter: 2018Q1

REPORT INFORMATION
  Report Type: Report from Study
  Country: None (occurrence: BR)
  Receive Date: 20180220
  Receipt Date: 20180307
  Transmission Date: 20180509
  Serious: Yes (Disabling, Other)
  Sender: FDA-Public Use
  Company Number: BR-ABBVIE-18K-020-2260651-00

PATIENT
  Age: 50 Year
  Sex: Male

DRUGS (1)
  1. HUMIRA [Suspect]
     Active Substance: ADALIMUMAB
     Indication: ANKYLOSING SPONDYLITIS
     Route: 058
     Dates: start: 20170825

REACTIONS (9)
  - Eye irritation [Unknown]
  - Eye swelling [Unknown]
  - Eye inflammation [Unknown]
  - Ocular hyperaemia [Unknown]
  - Rheumatic disorder [Unknown]
  - Hypersensitivity [Unknown]
  - Nausea [Unknown]
  - Injection site pain [Unknown]
  - Injection site haemorrhage [Unknown]

NARRATIVE: CASE EVENT DATE: 201711
